FAERS Safety Report 8019281-0 (Version None)
Quarter: 2012Q1

REPORT INFORMATION
  Report Type: 
  Country: None (occurrence: None)
  Receive Date: 20120103
  Receipt Date: 20111221
  Transmission Date: 20120608
  Serious: No
  Sender: FDA-Public Use
  Company Number: US-PFIZER INC-K201100543

PATIENT
  Age: 51 Year
  Sex: Female
  Weight: 69.841 kg

DRUGS (6)
  1. TRAMADOL [Concomitant]
     Indication: PAIN
     Dosage: 50 MG, EVERY 4 HOURS AS NEEDED
     Dates: start: 20090101
  2. FLEXERIL [Concomitant]
     Indication: PAIN
     Dosage: 5 MG, AS NEEDED
     Dates: start: 20090101
  3. EPIPEN [Suspect]
     Dosage: UNK
     Dates: start: 20091101, end: 20091101
  4. ZOLOFT [Concomitant]
     Dosage: 100 MG, 1X/DAY
     Route: 046
     Dates: start: 20091101
  5. HYDROCODONE [Concomitant]
     Indication: PAIN
     Dosage: UNK
     Route: 048
  6. VALIUM [Concomitant]
     Dosage: 5 MG, AS NEEDED
     Route: 048
     Dates: start: 20091101

REACTIONS (1)
  - DRUG INEFFECTIVE [None]
